FAERS Safety Report 4284031-0 (Version None)
Quarter: 2004Q1

REPORT INFORMATION
  Report Type: 
  Country: None (occurrence: None)
  Receive Date: 20040130
  Receipt Date: 20040120
  Transmission Date: 20041129
  Serious: Yes (Other)
  Sender: FDA-Public Use
  Company Number: 2004004208

PATIENT
  Sex: Female
  Weight: 90.7194 kg

DRUGS (4)
  1. LIPITOR [Suspect]
     Indication: BLOOD CHOLESTEROL
     Dosage: 10 MG (DAILY), ORAL
     Route: 048
  2. THEOPHYLLINE [Concomitant]
  3. VERAPAMIL [Concomitant]
  4. ANTIPSORIATICS FOR TOPICAL USE [Concomitant]

REACTIONS (3)
  - BODY HEIGHT DECREASED [None]
  - CATARACT [None]
  - VISUAL ACUITY REDUCED [None]
